FAERS Safety Report 5485488-X (Version None)
Quarter: 2007Q4

REPORT INFORMATION
  Report Type: 
  Country: None (occurrence: None)
  Receive Date: 20071010
  Receipt Date: 20071010
  Transmission Date: 20080405
  Serious: Yes (Hospitalization)
  Sender: FDA-Public Use
  Company Number: None

PATIENT
  Age: 77 Year
  Sex: Male

DRUGS (1)
  1. LAMOTRIGINE [Suspect]
     Dosage: 50 MG ONCE DAILY PO
     Route: 048
     Dates: start: 20070512, end: 20070518

REACTIONS (6)
  - ERYTHEMA MULTIFORME [None]
  - INFLAMMATION [None]
  - MOUTH ULCERATION [None]
  - PETECHIAE [None]
  - PRURITUS [None]
  - RASH [None]
